FAERS Safety Report 12714277 (Version 1)
Quarter: 2016Q3

REPORT INFORMATION
  Report Type: Spontaneous
  Country: US (occurrence: US)
  Receive Date: 20160905
  Receipt Date: 20160905
  Transmission Date: 20161109
  Serious: No
  Sender: FDA-Public Use
  Company Number: US-PFIZER INC-2016405231

PATIENT
  Sex: Male

DRUGS (2)
  1. COLESTIPOL HCL [Suspect]
     Active Substance: COLESTIPOL HYDROCHLORIDE
     Dosage: 1 DF, 1X/DAY
  2. COLESTIPOL HCL [Suspect]
     Active Substance: COLESTIPOL HYDROCHLORIDE
     Dosage: 2 DF, 2X/DAY (TWO, TWICE A DAY)

REACTIONS (2)
  - Intentional product use issue [Not Recovered/Not Resolved]
  - Blood pressure increased [Recovered/Resolved]
